FAERS Safety Report 10766394 (Version 1)
Quarter: 2015Q1

REPORT INFORMATION
  Report Type: Spontaneous
  Country: US (occurrence: US)
  Receive Date: 20150205
  Receipt Date: 20150205
  Transmission Date: 20150721
  Serious: No
  Sender: FDA-Public Use
  Company Number: US-BAXTER-2015BAX003860

PATIENT

DRUGS (2)
  1. PENICILLIN G POTASSIUM INJECTION, USP [Suspect]
     Active Substance: PENICILLIN G POTASSIUM
     Indication: PRODUCT USED FOR UNKNOWN INDICATION
     Route: 065
  2. FORMALDEHYDE. [Suspect]
     Active Substance: FORMALDEHYDE
     Indication: PRODUCT USED FOR UNKNOWN INDICATION
     Route: 065

REACTIONS (1)
  - Drug hypersensitivity [Unknown]
